FAERS Safety Report 9543068 (Version 1)
Quarter: 2013Q3

REPORT INFORMATION
  Report Type: Spontaneous
  Country: US (occurrence: US)
  Receive Date: 20130923
  Receipt Date: 20130923
  Transmission Date: 20140515
  Serious: Yes (Other)
  Sender: FDA-Public Use
  Company Number: US-PFIZER INC-2013271691

PATIENT
  Age: 65 Year
  Sex: Male
  Weight: 109.75 kg

DRUGS (7)
  1. NITROSTAT [Suspect]
     Indication: ANGINA PECTORIS
     Dosage: 0.4 MG, AS NEEDED
     Route: 060
     Dates: start: 1993
  2. NITROSTAT [Suspect]
     Indication: CHEST PAIN
  3. TENORMIN [Concomitant]
     Indication: HYPERTENSION
     Dosage: 25 MG, 1X/DAY
  4. JANUMET [Concomitant]
     Dosage: 1000/50 MG, 2X/DAY
  5. GLIPIZIDE XL [Concomitant]
     Indication: DIABETES MELLITUS
     Dosage: 10 MG, 2X/DAY
  6. ASPIRIN [Concomitant]
     Dosage: 81 MG, UNK
  7. ATORVASTATIN [Concomitant]
     Dosage: 40 MG, 1X/DAY

REACTIONS (1)
  - Cardiac valve disease [Unknown]
